FAERS Safety Report 7876811 (Version 7)
Quarter: 2013Q4

REPORT INFORMATION
  Report Type: Spontaneous
  Country: GB (occurrence: GB)
  Receive Date: 20110329
  Receipt Date: 20131031
  Transmission Date: 20140711
  Serious: Yes (Death)
  Sender: FDA-Public Use
  Company Number: GB-009507513-1103GBR00133

PATIENT
  Sex: 0

DRUGS (2)
  1. EMEND [Suspect]
     Route: 048
  2. FENTANYL [Concomitant]

REACTIONS (1)
  - Death [Fatal]
